FAERS Safety Report 8477310-4 (Version None)
Quarter: 2012Q2

REPORT INFORMATION
  Report Type: 
  Country: None (occurrence: None)
  Receive Date: 20120622
  Receipt Date: 20120613
  Transmission Date: 20120825
  Serious: No
  Sender: FDA-Public Use
  Company Number: 2012SP032804

PATIENT
  Age: 31 Year
  Sex: Male

DRUGS (1)
  1. SAPHRIS [Suspect]
     Indication: SCHIZOPHRENIA
     Dosage: 10 MG;ONCE;SL
     Route: 060
     Dates: start: 20120612, end: 20120612

REACTIONS (2)
  - DRUG HYPERSENSITIVITY [None]
  - SWOLLEN TONGUE [None]
